FAERS Safety Report 7206383-1 (Version None)
Quarter: 2011Q1

REPORT INFORMATION
  Report Type: 
  Country: None (occurrence: None)
  Receive Date: 20110103
  Receipt Date: 20110103
  Transmission Date: 20110831
  Serious: Yes (Hospitalization)
  Sender: FDA-Public Use
  Company Number: PHHO2007DE13629

PATIENT
  Sex: Male

DRUGS (4)
  1. CONCOR [Concomitant]
  2. ALLOPURINOL [Concomitant]
  3. CERTICAN [Suspect]
     Indication: CONGENITAL CYSTIC KIDNEY DISEASE
     Dosage: UNK, UNK
     Route: 048
     Dates: start: 20070308, end: 20070814
  4. LISINOPRIL [Concomitant]

REACTIONS (3)
  - PRESYNCOPE [None]
  - DIZZINESS [None]
  - ATRIAL FIBRILLATION [None]
